FAERS Safety Report 8888631 (Version 3)
Quarter: 2012Q4

REPORT INFORMATION
  Report Type: 
  Country: JP (occurrence: JP)
  Receive Date: 20121106
  Receipt Date: 20121228
  Transmission Date: 20130627
  Serious: Yes (Hospitalization)
  Sender: FDA-Public Use
  Company Number: JP-PFIZER INC-2012272781

PATIENT
  Sex: Female

DRUGS (1)
  1. SUTENT [Suspect]
     Indication: PANCREATIC NEUROENDOCRINE TUMOUR
     Dosage: 37.5 mg, 1x/day
     Route: 048
     Dates: start: 20120914, end: 20121011

REACTIONS (2)
  - Aortic dissection [Recovered/Resolved]
  - Thrombocytopenia [Recovered/Resolved]
